FAERS Safety Report 9959990 (Version 1)
Quarter: 2014Q1

REPORT INFORMATION
  Report Type: Spontaneous
  Country: US (occurrence: None)
  Receive Date: 20140228
  Receipt Date: 20140228
  Transmission Date: 20141002
  Serious: No
  Sender: FDA-Public Use
  Company Number: None

PATIENT
  Age: 4 Year
  Sex: Female
  Weight: 22.68 kg

DRUGS (1)
  1. FLOMAX [Suspect]
     Route: 048

REACTIONS (1)
  - Circumstance or information capable of leading to medication error [None]
